FAERS Safety Report 19806087 (Version 1)
Quarter: 2021Q3

REPORT INFORMATION
  Report Type: Spontaneous
  Country: CA (occurrence: CA)
  Receive Date: 20210908
  Receipt Date: 20210908
  Transmission Date: 20211014
  Serious: Yes (Death, Hospitalization, Other)
  Sender: FDA-Public Use
  Company Number: CA-TEVA-2021-CA-1948852

PATIENT
  Age: 73 Year
  Sex: Female

DRUGS (12)
  1. SILDENAFIL CITRATE. [Suspect]
     Active Substance: SILDENAFIL CITRATE
     Indication: PULMONARY ARTERIAL HYPERTENSION
     Dosage: 60 MILLIGRAM DAILY;
     Route: 048
  2. ACETYLSALICYLIC ACID [Concomitant]
     Active Substance: ASPIRIN
  3. DOMPERIDONE [Concomitant]
     Active Substance: DOMPERIDONE
  4. PREVACID [Concomitant]
     Active Substance: LANSOPRAZOLE
  5. POTASSIUM [Concomitant]
     Active Substance: POTASSIUM
  6. CARIPUL [Concomitant]
     Active Substance: EPOPROSTENOL
  7. SYNTHROID [Concomitant]
     Active Substance: LEVOTHYROXINE SODIUM
  8. FUROSEMIDE. [Concomitant]
     Active Substance: FUROSEMIDE
  9. CALCIUM [Concomitant]
     Active Substance: CALCIUM
  10. ATORVASTATIN [Concomitant]
     Active Substance: ATORVASTATIN
  11. OPSUMIT [Concomitant]
     Active Substance: MACITENTAN
  12. OMEGA 3 [FISH OIL] [Concomitant]
     Active Substance: FISH OIL

REACTIONS (6)
  - Nausea [Fatal]
  - Asthenia [Fatal]
  - Death [Fatal]
  - Dyspnoea [Fatal]
  - Weight decreased [Fatal]
  - Fatigue [Fatal]
